FAERS Safety Report 4991452-7 (Version None)
Quarter: 2006Q2

REPORT INFORMATION
  Report Type: 
  Country: None (occurrence: None)
  Receive Date: 20060501
  Receipt Date: 20060501
  Transmission Date: 20061013
  Serious: No
  Sender: FDA-Public Use
  Company Number: None

PATIENT
  Age: 21 Year
  Sex: Male
  Weight: 65.7716 kg

DRUGS (2)
  1. PAXIL [Suspect]
     Indication: GENERALISED ANXIETY DISORDER
     Dosage: 20 MILLIGRAMS   ONCE PER A DAY   PO
     Route: 048
     Dates: start: 20010530, end: 20050901
  2. PAXIL [Suspect]
     Indication: PANIC ATTACK
     Dosage: 20 MILLIGRAMS   ONCE PER A DAY   PO
     Route: 048
     Dates: start: 20010530, end: 20050901

REACTIONS (28)
  - ABDOMINAL DISTENSION [None]
  - AGORAPHOBIA [None]
  - ALOPECIA [None]
  - AMNESIA [None]
  - ANXIETY [None]
  - ASTHENIA [None]
  - BLOOD CHOLESTEROL INCREASED [None]
  - CONFUSIONAL STATE [None]
  - DEPRESSION [None]
  - FEELING ABNORMAL [None]
  - FLAT AFFECT [None]
  - HYPERHIDROSIS [None]
  - HYPOTRICHOSIS [None]
  - IMPAIRED SELF-CARE [None]
  - IMPULSIVE BEHAVIOUR [None]
  - JAW DISORDER [None]
  - MIGRAINE [None]
  - NIGHTMARE [None]
  - OBSESSIVE THOUGHTS [None]
  - OBSESSIVE-COMPULSIVE DISORDER [None]
  - PARAESTHESIA [None]
  - PHOTOPHOBIA [None]
  - PRURITUS GENERALISED [None]
  - RASH MACULAR [None]
  - SKIN ULCER [None]
  - SOMNOLENCE [None]
  - TONGUE COATED [None]
  - TONGUE DISCOLOURATION [None]
